FAERS Safety Report 6752211-8 (Version None)
Quarter: 2010Q2

REPORT INFORMATION
  Report Type: 
  Country: None (occurrence: None)
  Receive Date: 20100602
  Receipt Date: 20100525
  Transmission Date: 20101027
  Serious: Yes (Other)
  Sender: FDA-Public Use
  Company Number: US-JNJFOC-20090904685

PATIENT
  Sex: Female

DRUGS (5)
  1. LEVAQUIN [Suspect]
     Indication: SINUSITIS
     Dosage: FOR 21 DAYS
     Route: 048
  2. LEVAQUIN [Suspect]
     Dosage: FOR 21 DAYS
     Route: 048
  3. LEVAQUIN [Suspect]
     Indication: BACTERIAL INFECTION
     Dosage: FOR 21 DAYS
     Route: 048
  4. LEVAQUIN [Suspect]
     Dosage: FOR 21 DAYS
     Route: 048
  5. PREDNISONE [Suspect]
     Indication: DRUG USE FOR UNKNOWN INDICATION
     Dosage: FOR 7 DAYS
     Route: 048

REACTIONS (4)
  - ARTHRALGIA [None]
  - EPICONDYLITIS [None]
  - TENDON INJURY [None]
  - TENDONITIS [None]
